FAERS Safety Report 7182803-6 (Version None)
Quarter: 2010Q4

REPORT INFORMATION
  Report Type: 
  Country: None (occurrence: None)
  Receive Date: 20101222
  Receipt Date: 20101208
  Transmission Date: 20110411
  Serious: Yes (Other)
  Sender: FDA-Public Use
  Company Number: SE-MYLANLABS-2010S1022355

PATIENT
  Age: 28 Year
  Sex: Female

DRUGS (4)
  1. CITALOPRAM [Suspect]
     Indication: DEPRESSION
     Route: 048
  2. CITALOPRAM [Suspect]
     Route: 048
  3. CITALOPRAM [Suspect]
     Route: 048
  4. FLUOXETINE [Suspect]
     Indication: DEPRESSION
     Route: 048
     Dates: start: 20101204

REACTIONS (6)
  - DRUG WITHDRAWAL SYNDROME [None]
  - HEADACHE [None]
  - MYALGIA [None]
  - NAUSEA [None]
  - VISION BLURRED [None]
  - WEIGHT INCREASED [None]
